FAERS Safety Report 23638073 (Version 3)
Quarter: 2024Q3

REPORT INFORMATION
  Report Type: Spontaneous
  Country: CA (occurrence: CA)
  Receive Date: 20240315
  Receipt Date: 20240703
  Transmission Date: 20241017
  Serious: Yes (Death, Life-Threatening, Hospitalization, Disabling, Other)
  Sender: ANI
  Company Number: CA-ANIPHARMA-2024-CA-001539

PATIENT
  Age: 40 Year
  Sex: Female
  Weight: 96 kg

DRUGS (116)
  1. CANDESARTAN CILEXETIL [Suspect]
     Active Substance: CANDESARTAN CILEXETIL
     Indication: Migraine
     Route: 048
  2. DICLOFENAC POTASSIUM [Suspect]
     Active Substance: DICLOFENAC POTASSIUM
  3. ETANERCEPT [Suspect]
     Active Substance: ETANERCEPT
     Dosage: 50 MG WEEK / UNK / UNK / 40 MG UNK / 10 MG WEEK / UNK
     Route: 058
  4. LEFLUNOMIDE [Suspect]
     Active Substance: LEFLUNOMIDE
     Dosage: UNK / UNK / 10 MG DAILY / 10 MG DAILY / 20 MG DAILY / 20 MG UNK
     Route: 048
  5. METFORMIN HYDROCHLORIDE [Suspect]
     Active Substance: METFORMIN HYDROCHLORIDE
     Route: 042
  6. METHYLPREDNISOLONE [Suspect]
     Active Substance: METHYLPREDNISOLONE
  7. MINOCYCLINE [Suspect]
     Active Substance: MINOCYCLINE HYDROCHLORIDE
  8. NAPROXEN SODIUM [Suspect]
     Active Substance: NAPROXEN\NAPROXEN SODIUM
  9. NICOTINAMIDE [Suspect]
     Active Substance: NIACINAMIDE
     Dosage: 1 DF UNK
  10. PLAQUENIL [Suspect]
     Active Substance: HYDROXYCHLOROQUINE SULFATE
  11. PREDNISONE [Suspect]
     Active Substance: PREDNISONE
     Dosage: UNK / 10 MG UNK / UNK / UNK / UNK / UNK / 20 MG DAILY / UNK / 20 MG DAILY
     Route: 048
  12. RANITIDINE [Suspect]
     Active Substance: RANITIDINE
  13. LEFLUNOMIDE [Suspect]
     Active Substance: LEFLUNOMIDE
     Dosage: 10 MG / 10 MG QD / 10 MG / 20 MG / 20 MG QD / 10 MG QD
     Route: 048
  14. SULFASALAZINE [Suspect]
     Active Substance: SULFASALAZINE
     Dosage: UNK / 2 G DAILY / 2 G DAILY / UNK / 2 DF DAILY / UNK / 1 G DAILY / 1 G DAILY / 2 DF DAILY / UNK / 1
     Route: 048
  15. TETRACYCLINE HYDROCHLORIDE [Suspect]
     Active Substance: TETRACYCLINE HYDROCHLORIDE
  16. TRAMADOL HYDROCHLORIDE [Suspect]
     Active Substance: TRAMADOL HYDROCHLORIDE
  17. DICLOFENAC DIETHYLAMINE [Suspect]
     Active Substance: DICLOFENAC DIETHYLAMINE
  18. ALENDRONIC ACID [Suspect]
     Active Substance: ALENDRONIC ACID
  19. FLUMETHASONE [Suspect]
     Active Substance: FLUMETHASONE
     Route: 058
  20. HAIR KERATIN AMINO ACIDS GOLD COMPLEX [Suspect]
     Active Substance: HAIR KERATIN AMINO ACIDS GOLD COMPLEX
  21. MINOCIN [Suspect]
     Active Substance: MINOCYCLINE HYDROCHLORIDE
  22. MINOCYCLINE [Suspect]
     Active Substance: MINOCYCLINE HYDROCHLORIDE
  23. TOFACITINIB CITRATE [Suspect]
     Active Substance: TOFACITINIB CITRATE
  24. PREDNISONE [Suspect]
     Active Substance: PREDNISONE
     Dosage: 1 MG UNK / UNK / 50 MG QD / 5 MG UNK / 5 MG UNK / 10 MG UNK / 20 MG DAILY / UNK / UNK / UNK / 40
     Route: 048
  25. ACETAMINOPHEN AND CODEINE [Suspect]
     Active Substance: ACETAMINOPHEN\CODEINE PHOSPHATE
  26. TRAMADOL HYDROCHLORIDE [Suspect]
     Active Substance: TRAMADOL HYDROCHLORIDE
  27. APREMILAST [Suspect]
     Active Substance: APREMILAST
     Dosage: 3 MG BID
     Route: 048
  28. ARAVA [Suspect]
     Active Substance: LEFLUNOMIDE
     Dosage: 20 MG DAILY / 20 MG
     Route: 048
  29. ATOMOXETINE HYDROCHLORIDE [Suspect]
     Active Substance: ATOMOXETINE HYDROCHLORIDE
     Dosage: 1 DF
  30. AZATHIOPRINE SODIUM [Suspect]
     Active Substance: AZATHIOPRINE SODIUM
  31. BERINERT [Suspect]
     Active Substance: HUMAN C1-ESTERASE INHIBITOR
  32. BOTULINUM TOXIN TYPE A [Suspect]
     Active Substance: BOTULINUM TOXIN TYPE A
  33. RAMIPRIL [Suspect]
     Active Substance: RAMIPRIL
     Route: 042
  34. BOTULINUM TOXIN TYPE A [Suspect]
     Active Substance: BOTULINUM TOXIN TYPE A
  35. BUTRANS [Suspect]
     Active Substance: BUPRENORPHINE
  36. CALCIUM ASCORBATE [Suspect]
     Active Substance: CALCIUM ASCORBATE
  37. CALCIUM CARBONATE [Suspect]
     Active Substance: CALCIUM CARBONATE
  38. CALCIUM GLUBIONATE [Suspect]
     Active Substance: CALCIUM GLUBIONATE
  39. CELEBREX [Suspect]
     Active Substance: CELECOXIB
     Dosage: 1 DF DAILY / 2 DF DAILY
     Route: 048
  40. CETIRIZINE HYDROCHLORIDE [Suspect]
     Active Substance: CETIRIZINE HYDROCHLORIDE
     Route: 048
  41. CIMZIA [Suspect]
     Active Substance: CERTOLIZUMAB PEGOL
     Route: 058
  42. CORTISONE ACETATE [Suspect]
     Active Substance: CORTISONE ACETATE
     Route: 058
  43. ACETAMINOPHEN [Suspect]
     Active Substance: ACETAMINOPHEN
     Dosage: 20 MG UNK / UNK / UNK
  44. CORTISONE ACETATE [Suspect]
     Active Substance: CORTISONE ACETATE
     Route: 061
  45. COSENTYX [Suspect]
     Active Substance: SECUKINUMAB
  46. DESOXIMETASONE [Suspect]
     Active Substance: DESOXIMETASONE
     Route: 048
  47. DICLOFENAC DIETHYLAMINE [Suspect]
     Active Substance: DICLOFENAC DIETHYLAMINE
  48. DOMPERIDONE MALEATE [Suspect]
     Active Substance: DOMPERIDONE MALEATE
  49. ENBREL [Suspect]
     Active Substance: BENZYL ALCOHOL\ETANERCEPT
     Dosage: 50 MG WEEK
     Route: 058
  50. ERELZI [Suspect]
     Active Substance: ETANERCEPT-SZZS
     Dosage: 10 MG WEEK
  51. ERGOCALCIFEROL [Suspect]
     Active Substance: ERGOCALCIFEROL
  52. FLUMETHASONE PIVALATE [Suspect]
     Active Substance: FLUMETHASONE PIVALATE
  53. ACETAMINOPHEN AND CODEINE [Suspect]
     Active Substance: ACETAMINOPHEN\CODEINE PHOSPHATE
     Dosage: DOSE TEXT: USP160MG-8MG/5ML
  54. FOLIC ACID [Suspect]
     Active Substance: FOLIC ACID
     Route: 048
  55. FOSAMAX [Suspect]
     Active Substance: ALENDRONATE SODIUM
     Route: 048
  56. GOLD SODIUM THIOMALATE [Suspect]
     Active Substance: GOLD SODIUM THIOMALATE
  57. GOLIMUMAB [Suspect]
     Active Substance: GOLIMUMAB
     Route: 058
  58. HUMIRA [Suspect]
     Active Substance: ADALIMUMAB
     Route: 058
  59. HYDROCORTISONE [Suspect]
     Active Substance: HYDROCORTISONE\HYDROCORTISONE ACETATE
  60. HYDROCORTISONE\NEOMYCIN SULFATE [Suspect]
     Active Substance: HYDROCORTISONE\NEOMYCIN SULFATE
  61. HYDROXYCHLOROQUINE [Suspect]
     Active Substance: HYDROXYCHLOROQUINE
     Dosage: 400 MG QD
  62. HYDROXYCHLOROQUINE [Suspect]
     Active Substance: HYDROXYCHLOROQUINE
  63. ACTEMRA [Suspect]
     Active Substance: TOCILIZUMAB
     Dosage: 25 MG WEEK / 20 MG UNK / 162 MG UNK / 8 MG UNK / 8 MG UNK / 728 MG UNK / 8 MG/KG UNK / 2912 MG UNK /
     Route: 058
  64. ISOPROPYL ALCOHOL [Suspect]
     Active Substance: ISOPROPYL ALCOHOL
     Route: 061
  65. KEVZARA [Suspect]
     Active Substance: SARILUMAB
     Route: 048
  66. LAMICTAL [Suspect]
     Active Substance: LAMOTRIGINE
  67. MAGNESIUM CITRATE [Suspect]
     Active Substance: MAGNESIUM CITRATE
  68. MEGLUMINE [Suspect]
     Active Substance: MEGLUMINE
     Route: 042
  69. METHOTREXATE [Suspect]
     Active Substance: METHOTREXATE
     Dosage: 20 MG DAILY / 25 MG BID / UNK / 25 MG WEEK / 15 MG WEEK
     Route: 048
  70. METHYLPREDNISOLONE SODIUM SUCCINATE [Suspect]
     Active Substance: METHYLPREDNISOLONE SODIUM SUCCINATE
  71. MINOCYCLINE HYDROCHLORIDE [Suspect]
     Active Substance: MINOCYCLINE HYDROCHLORIDE
  72. MYOCHRYSINE [Suspect]
     Active Substance: GOLD SODIUM THIOMALATE
  73. MYRBETRIQ [Suspect]
     Active Substance: MIRABEGRON
     Dosage: 1 DF DAILY
  74. NAPROXEN [Suspect]
     Active Substance: NAPROXEN
  75. NAPROXEN [Suspect]
     Active Substance: NAPROXEN
  76. NUCALA [Suspect]
     Active Substance: MEPOLIZUMAB
  77. ORENCIA [Suspect]
     Active Substance: ABATACEPT
     Dosage: 125 MG WEEK
     Route: 042
  78. OXYCODONE [Suspect]
     Active Substance: OXYCODONE
  79. OXYCODONE TEREPHTHALATE [Suspect]
     Active Substance: OXYCODONE TEREPHTHALATE
  80. PERIOGARD [Suspect]
     Active Substance: CHLORHEXIDINE GLUCONATE
     Route: 061
  81. PHENYLEPHRINE HYDROCHLORIDE [Suspect]
     Active Substance: COCOA BUTTER\PHENYLEPHRINE HYDROCHLORIDE\SHARK LIVER OIL
  82. PHTHALYLSULFATHIAZOLE [Suspect]
     Active Substance: PHTHALYLSULFATHIAZOLE
     Dosage: 2000 MM DAILY
  83. PSEUDOEPHEDRINE HYDROCHLORIDE [Suspect]
     Active Substance: PSEUDOEPHEDRINE HYDROCHLORIDE
  84. AIMOVIG [Suspect]
     Active Substance: ERENUMAB-AOOE
  85. RANITIDINE HYDROCHLORIDE [Suspect]
     Active Substance: RANITIDINE HYDROCHLORIDE
  86. CETIRIZINE HYDROCHLORIDE\PSEUDOEPHEDRINE HYDROCHLORIDE [Suspect]
     Active Substance: CETIRIZINE HYDROCHLORIDE\PSEUDOEPHEDRINE HYDROCHLORIDE
  87. REMICADE [Suspect]
     Active Substance: INFLIXIMAB
     Dosage: 500 MG DAILY
     Route: 058
  88. RIBOFLAVIN [Suspect]
     Active Substance: RIBOFLAVIN
  89. RITUXIMAB [Suspect]
     Active Substance: RITUXIMAB
     Dosage: 2000 MG QD / UNK / UNK / UNK / 2 G QD / 1000 MM BID
     Route: 042
  90. SULFASALAZINE [Suspect]
     Active Substance: SULFASALAZINE
     Dosage: 2000 MM QD / UNK / UNK / UNK / UNK / 1 G DAILY / 300 MG DAILY / UNK / 2 G DAILY / 1 G BID / UNK/2 G
     Route: 048
  91. SIMPONI [Suspect]
     Active Substance: GOLIMUMAB
     Route: 058
  92. SIRUKUMAB [Suspect]
     Active Substance: SIRUKUMAB
     Route: 048
  93. GOLD SODIUM THIOMALATE [Suspect]
     Active Substance: GOLD SODIUM THIOMALATE
     Route: 048
  94. STELARA [Suspect]
     Active Substance: USTEKINUMAB
     Route: 058
  95. ALENDRONATE SODIUM [Suspect]
     Active Substance: ALENDRONATE SODIUM
     Route: 048
  96. SULFAMETHOXAZOLE\TRIMETHOPRIM [Suspect]
     Active Substance: SULFAMETHOXAZOLE\TRIMETHOPRIM
  97. THIAMINE HYDROCHLORIDE [Suspect]
     Active Substance: THIAMINE HYDROCHLORIDE
  98. TOCILIZUMAB [Suspect]
     Active Substance: TOCILIZUMAB
     Route: 058
  99. TOFACITINIB [Suspect]
     Active Substance: TOFACITINIB
     Dosage: 5 MG BID / 10 MG DAILY / 10 MG DAILY
     Route: 048
  100. TOPIRAMATE [Suspect]
     Active Substance: TOPIRAMATE
     Dosage: 25 MG DAILY / 3 MG DAILY
  101. TRIAMCINOLONE ACETONIDE [Suspect]
     Active Substance: TRIAMCINOLONE ACETONIDE
  102. USTEKINUMAB [Suspect]
     Active Substance: USTEKINUMAB
     Route: 058
  103. VITAMIN A [Suspect]
     Active Substance: VITAMIN A
     Dosage: 1 DF UNK
  104. VITAMIN C [Suspect]
     Active Substance: ASCORBIC ACID
  105. VITAMIN D3 [Suspect]
     Active Substance: CHOLECALCIFEROL
  106. ALENDRONATE SODIUM\CHOLECALCIFEROL [Suspect]
     Active Substance: ALENDRONATE SODIUM\CHOLECALCIFEROL
  107. XELJANZ [Suspect]
     Active Substance: TOFACITINIB CITRATE
     Dosage: 10 MG DAILY / 20 MG DAILY / UNK / 10 MG DAILY
     Route: 048
  108. CETIRIZINE HYDROCHLORIDE [Suspect]
     Active Substance: CETIRIZINE HYDROCHLORIDE
  109. CETIRIZINE HYDROCHLORIDE [Suspect]
     Active Substance: CETIRIZINE HYDROCHLORIDE
  110. DESOGESTREL AND ETHINYL ESTRADIOL [Concomitant]
     Active Substance: DESOGESTREL\ETHINYL ESTRADIOL
  111. ALENDRONIC ACID [Suspect]
     Active Substance: ALENDRONIC ACID
     Route: 048
  112. ALENDRONATE SODIUM\CHOLECALCIFEROL [Suspect]
     Active Substance: ALENDRONATE SODIUM\CHOLECALCIFEROL
  113. CERTOLIZUMAB PEGOL [Suspect]
     Active Substance: CERTOLIZUMAB PEGOL
     Dosage: UNK / UNK / UNK / UNK / UNK / 200 MG UNK
     Route: 058
  114. CHLORHEXIDINE GLUCONATE [Suspect]
     Active Substance: CHLORHEXIDINE GLUCONATE
     Route: 061
  115. DICLOFENAC SODIUM [Suspect]
     Active Substance: DICLOFENAC\DICLOFENAC SODIUM
     Dosage: UNK / UNK / 50 MG UNK
     Route: 058
  116. ERENUMAB [Suspect]
     Active Substance: ERENUMAB

REACTIONS (94)
  - Onychomadesis [Fatal]
  - Pain [Fatal]
  - Pemphigus [Fatal]
  - Pericarditis [Fatal]
  - Psoriatic arthropathy [Fatal]
  - Rash [Fatal]
  - Rheumatic fever [Fatal]
  - Rheumatoid arthritis [Fatal]
  - C-reactive protein abnormal [Fatal]
  - Sleep disorder [Fatal]
  - Swelling [Fatal]
  - Synovitis [Fatal]
  - Systemic lupus erythematosus [Fatal]
  - Type 2 diabetes mellitus [Fatal]
  - Wound [Fatal]
  - Contraindicated product administered [Fatal]
  - Drug ineffective [Fatal]
  - Ill-defined disorder [Fatal]
  - Off label use [Fatal]
  - C-reactive protein increased [Fatal]
  - Product use in unapproved indication [Fatal]
  - Product use issue [Fatal]
  - Therapeutic product effect decreased [Fatal]
  - Therapeutic product effect incomplete [Fatal]
  - Treatment failure [Fatal]
  - Back injury [Fatal]
  - Bursitis [Fatal]
  - Fall [Fatal]
  - Finger deformity [Fatal]
  - Folliculitis [Fatal]
  - Confusional state [Fatal]
  - Gait inability [Fatal]
  - Gastrooesophageal reflux disease [Fatal]
  - Hepatitis [Fatal]
  - Hypoaesthesia [Fatal]
  - Injury [Fatal]
  - Liver function test increased [Fatal]
  - Mobility decreased [Fatal]
  - Muscular weakness [Fatal]
  - Neck pain [Fatal]
  - Pain in extremity [Fatal]
  - Drug hypersensitivity [Fatal]
  - Weight increased [Fatal]
  - Wheezing [Fatal]
  - Wound infection [Fatal]
  - Pneumonia [Fatal]
  - Impaired healing [Fatal]
  - Irritable bowel syndrome [Fatal]
  - Joint range of motion decreased [Fatal]
  - Lip dry [Fatal]
  - Liver injury [Fatal]
  - Lower respiratory tract infection [Fatal]
  - Dyspnoea [Fatal]
  - Lung disorder [Fatal]
  - Memory impairment [Fatal]
  - Migraine [Fatal]
  - Muscle injury [Fatal]
  - Muscle spasms [Fatal]
  - Musculoskeletal pain [Fatal]
  - Nasopharyngitis [Fatal]
  - Night sweats [Fatal]
  - Obesity [Fatal]
  - Osteoarthritis [Not Recovered/Not Resolved]
  - Infusion related reaction [Fatal]
  - Paraesthesia [Not Recovered/Not Resolved]
  - Peripheral swelling [Fatal]
  - Peripheral venous disease [Fatal]
  - Product quality issue [Fatal]
  - Stomatitis [Fatal]
  - Taste disorder [Fatal]
  - Urticaria [Fatal]
  - Hypercholesterolaemia [Fatal]
  - Vomiting [Fatal]
  - Abdominal pain upper [Fatal]
  - Injection site reaction [Fatal]
  - Asthenia [Fatal]
  - Blepharospasm [Fatal]
  - Blister [Fatal]
  - Breast cancer stage III [Fatal]
  - Depression [Fatal]
  - Diarrhoea [Fatal]
  - Dizziness [Fatal]
  - Dry mouth [Fatal]
  - Duodenal ulcer perforation [Fatal]
  - Epilepsy [Fatal]
  - Nausea [Fatal]
  - Facet joint syndrome [Fatal]
  - Fibromyalgia [Fatal]
  - Helicobacter infection [Fatal]
  - Contusion [Fatal]
  - Loss of personal independence in daily activities [Fatal]
  - Maternal exposure during pregnancy [Fatal]
  - Overdose [Fatal]
  - Pruritus [Fatal]
